FAERS Safety Report 25861584 (Version 2)
Quarter: 2025Q4

REPORT INFORMATION
  Report Type: Spontaneous
  Country: US (occurrence: US)
  Receive Date: 20250930
  Receipt Date: 20251020
  Transmission Date: 20260117
  Serious: Yes (Hospitalization)
  Sender: TEVA
  Company Number: US-TEVA-VS-3375736

PATIENT
  Age: 44 Year
  Sex: Male

DRUGS (1)
  1. TESTOSTERONE [Suspect]
     Active Substance: TESTOSTERONE
     Indication: Muscle strength abnormal
     Dosage: SELF ADMINISTERED
     Route: 065

REACTIONS (2)
  - Hypoglycaemia [Recovering/Resolving]
  - Intentional product misuse [Unknown]
